FAERS Safety Report 4971488-2 (Version None)
Quarter: 2006Q2

REPORT INFORMATION
  Report Type: 
  Country: None (occurrence: None)
  Receive Date: 20060413
  Receipt Date: 20060410
  Transmission Date: 20061013
  Serious: Yes (Other)
  Sender: FDA-Public Use
  Company Number: PHRM2006FR01321

PATIENT
  Age: 65 Year
  Sex: Male

DRUGS (2)
  1. DIALYSIS [Concomitant]
     Indication: RENAL FAILURE CHRONIC
  2. ZOMETA [Suspect]
     Indication: MULTIPLE MYELOMA
     Dosage: 4 MG, QMO
     Route: 042

REACTIONS (1)
  - OSTEONECROSIS [None]
